FAERS Safety Report 26038246 (Version 1)
Quarter: 2025Q4

REPORT INFORMATION
  Report Type: Spontaneous
  Country: EU (occurrence: EU)
  Receive Date: 20251113
  Receipt Date: 20251113
  Transmission Date: 20260117
  Serious: Yes (Other)
  Sender: TEVA
  Company Number: None

PATIENT
  Age: 24 Year
  Sex: Male

DRUGS (3)
  1. ETOPOSIDE [Suspect]
     Active Substance: ETOPOSIDE
     Indication: Testicular neoplasm
     Dosage: NOT AVAILABLE / 2 WEEKS
     Route: 042
     Dates: start: 20250902
  2. CISPLATIN [Suspect]
     Active Substance: CISPLATIN
     Indication: Testicular neoplasm
     Dosage: NOT AVAILABLE / 2 WEEKS
     Route: 042
     Dates: start: 20250902
  3. BLEOMYCIN SULFATE [Suspect]
     Active Substance: BLEOMYCIN SULFATE
     Indication: Testicular neoplasm
     Dosage: NOT AVAILABLE / 2 WEEKS
     Route: 042
     Dates: start: 20250902

REACTIONS (9)
  - Neutropenia [Recovered/Resolved]
  - Constipation [Recovered/Resolved]
  - Cancer fatigue [Recovering/Resolving]
  - Vomiting [Recovered/Resolved]
  - Decreased appetite [Recovered/Resolved]
  - Cough [Recovered/Resolved]
  - Dyspnoea exertional [Recovering/Resolving]
  - Rash [Unknown]
  - Rectal haemorrhage [Unknown]

NARRATIVE: CASE EVENT DATE: 20250902
